FAERS Safety Report 15637056 (Version 2)
Quarter: 2018Q4

REPORT INFORMATION
  Report Type: Report from Study
  Country: US (occurrence: US)
  Receive Date: 20181120
  Receipt Date: 20181130
  Transmission Date: 20190205
  Serious: No
  Sender: FDA-Public Use
  Company Number: US-ELI_LILLY_AND_COMPANY-US201811008033

PATIENT
  Sex: Male

DRUGS (1)
  1. INSULIN, LISPRO [Suspect]
     Active Substance: INSULIN LISPRO
     Indication: PRODUCT USED FOR UNKNOWN INDICATION
     Dosage: 35 U, PRN
     Route: 058

REACTIONS (5)
  - Blood glucose increased [Unknown]
  - Hypoaesthesia [Not Recovered/Not Resolved]
  - Neuralgia [Unknown]
  - Osteoporosis [Unknown]
  - Rheumatoid arthritis [Unknown]
